FAERS Safety Report 25864658 (Version 2)
Quarter: 2025Q3

REPORT INFORMATION
  Report Type: Spontaneous
  Country: US (occurrence: US)
  Receive Date: 20250930
  Receipt Date: 20250930
  Transmission Date: 20251020
  Serious: No
  Sender: PFIZER
  Company Number: US-PFIZER INC-202500190017

PATIENT
  Age: 61 Year
  Sex: Female

DRUGS (1)
  1. GENOTROPIN [Suspect]
     Active Substance: SOMATROPIN

REACTIONS (4)
  - Device malfunction [Unknown]
  - Product storage error [Unknown]
  - Device physical property issue [Unknown]
  - Drug dose omission by device [Unknown]
